FAERS Safety Report 12875980 (Version 1)
Quarter: 2016Q4

REPORT INFORMATION
  Report Type: Spontaneous
  Country: US (occurrence: US)
  Receive Date: 20161024
  Receipt Date: 20161024
  Transmission Date: 20170207
  Serious: No
  Sender: FDA-Public Use
  Company Number: US-JAZZ-2016-US-015155

PATIENT
  Sex: Male

DRUGS (36)
  1. VITAMIN B12 [Concomitant]
     Active Substance: CYANOCOBALAMIN
  2. CEPHALEXIN. [Concomitant]
     Active Substance: CEPHALEXIN
  3. XYREM [Suspect]
     Active Substance: SODIUM OXYBATE
     Indication: NARCOLEPSY
     Dosage: 2.25 G, BID
     Route: 048
     Dates: start: 200803, end: 200806
  4. CLONAZEPAM. [Concomitant]
     Active Substance: CLONAZEPAM
  5. FISH OIL [Concomitant]
     Active Substance: FISH OIL
  6. XYREM [Suspect]
     Active Substance: SODIUM OXYBATE
     Dosage: 4.5 G, BID
     Route: 048
     Dates: start: 201003
  7. REMERON [Concomitant]
     Active Substance: MIRTAZAPINE
  8. XYREM [Suspect]
     Active Substance: SODIUM OXYBATE
     Dosage: 3.75 G, BID
     Route: 048
     Dates: start: 200806, end: 201003
  9. WELLBUTRIN [Concomitant]
     Active Substance: BUPROPION HYDROCHLORIDE
  10. TRAMADOL. [Concomitant]
     Active Substance: TRAMADOL
  11. LEVOTHYROXINE SODIUM. [Concomitant]
     Active Substance: LEVOTHYROXINE SODIUM
  12. ABILIFY [Concomitant]
     Active Substance: ARIPIPRAZOLE
  13. ZOLOFT [Concomitant]
     Active Substance: SERTRALINE HYDROCHLORIDE
  14. BUSPIRONE HCL [Concomitant]
     Active Substance: BUSPIRONE HYDROCHLORIDE
  15. AUGMENTIN [Concomitant]
     Active Substance: AMOXICILLIN\CLAVULANATE POTASSIUM
  16. MODAFINIL. [Concomitant]
     Active Substance: MODAFINIL
  17. MULTIVITAMINS [Concomitant]
     Active Substance: VITAMINS
  18. NIASPAN [Concomitant]
     Active Substance: NIACIN
  19. NUVIGIL [Concomitant]
     Active Substance: ARMODAFINIL
  20. SELENIUM [Concomitant]
     Active Substance: SELENIUM
  21. LYRICA [Concomitant]
     Active Substance: PREGABALIN
  22. VITAMIN D3 [Concomitant]
     Active Substance: CHOLECALCIFEROL
  23. VIAGRA [Concomitant]
     Active Substance: SILDENAFIL CITRATE
  24. RESTORIL [Concomitant]
     Active Substance: TEMAZEPAM
  25. FLUOXETINE HCL [Concomitant]
     Active Substance: FLUOXETINE HYDROCHLORIDE
  26. PROPRANOLOL [Concomitant]
     Active Substance: PROPRANOLOL\PROPRANOLOL HYDROCHLORIDE
  27. AZITHROMYCIN ANHYDROUS. [Concomitant]
     Active Substance: AZITHROMYCIN ANHYDROUS
  28. BUDESONIDE. [Concomitant]
     Active Substance: BUDESONIDE
  29. LEVOTHYROXINE. [Concomitant]
     Active Substance: LEVOTHYROXINE
  30. EFFEXOR [Concomitant]
     Active Substance: VENLAFAXINE HYDROCHLORIDE
  31. EUTHYROX [Concomitant]
     Active Substance: LEVOTHYROXINE SODIUM
  32. PROVIGIL [Concomitant]
     Active Substance: MODAFINIL
  33. ACETAMINOPHEN. [Concomitant]
     Active Substance: ACETAMINOPHEN
  34. ASPIRIN. [Concomitant]
     Active Substance: ASPIRIN
  35. DICLOFENAC [Concomitant]
     Active Substance: DICLOFENAC
  36. LINZESS [Concomitant]
     Active Substance: LINACLOTIDE

REACTIONS (1)
  - Cardiac disorder [Unknown]
